FAERS Safety Report 25921954 (Version 1)
Quarter: 2025Q4

REPORT INFORMATION
  Report Type: Spontaneous
  Country: BD (occurrence: BD)
  Receive Date: 20251015
  Receipt Date: 20251015
  Transmission Date: 20260118
  Serious: Yes (Other)
  Sender: PHARMOBEDIENT CONSULTING, LLC
  Company Number: BD-Pharmobedient-000315

PATIENT
  Age: 26 Year
  Sex: Male

DRUGS (3)
  1. TADALAFIL [Suspect]
     Active Substance: TADALAFIL
     Indication: Erectile dysfunction
  2. ESCITALOPRAM [Concomitant]
     Active Substance: ESCITALOPRAM OXALATE
     Indication: Product used for unknown indication
  3. VITAMINS [Concomitant]
     Active Substance: VITAMINS
     Indication: Product used for unknown indication

REACTIONS (9)
  - Male orgasmic disorder [Recovered/Resolved]
  - Syncope [Recovered/Resolved]
  - Dizziness [Recovered/Resolved]
  - Palpitations [Recovered/Resolved]
  - Headache [Recovered/Resolved]
  - Anxiety [Recovered/Resolved]
  - Fall [Recovered/Resolved]
  - Cognitive disorder [Recovered/Resolved]
  - Fear of death [Recovered/Resolved]
